FAERS Safety Report 9477292 (Version 1)
Quarter: 2013Q3

REPORT INFORMATION
  Report Type: Spontaneous
  Country: AU (occurrence: AU)
  Receive Date: 20130826
  Receipt Date: 20130826
  Transmission Date: 20140515
  Serious: Yes (Other)
  Sender: FDA-Public Use
  Company Number: AU-ROCHE-1264760

PATIENT
  Sex: Female

DRUGS (13)
  1. HERCEPTIN [Suspect]
     Indication: BREAST CANCER METASTATIC
     Route: 065
     Dates: start: 200906, end: 200907
  2. HERCEPTIN [Suspect]
     Route: 065
     Dates: start: 201106, end: 201107
  3. HERCEPTIN [Suspect]
     Route: 065
     Dates: start: 201202, end: 201206
  4. HERCEPTIN [Suspect]
     Route: 065
     Dates: start: 201207, end: 201210
  5. HERCEPTIN [Suspect]
     Route: 065
     Dates: start: 201302, end: 201307
  6. XELODA [Suspect]
     Indication: BREAST CANCER METASTATIC
     Route: 065
  7. NAB-PACLITAXEL [Concomitant]
     Indication: BREAST CANCER METASTATIC
  8. LAPATINIB [Concomitant]
     Indication: BREAST CANCER METASTATIC
  9. VINORELBINE [Concomitant]
     Indication: BREAST CANCER METASTATIC
  10. PEGYLATED LIPOSOMAL DOXORUBICIN [Concomitant]
     Indication: BREAST CANCER METASTATIC
  11. GEMCITABINE [Concomitant]
     Indication: BREAST CANCER METASTATIC
  12. CARBOPLATIN [Concomitant]
     Indication: BREAST CANCER METASTATIC
  13. TYKERB [Concomitant]
     Indication: BREAST CANCER METASTATIC

REACTIONS (1)
  - Disease progression [Unknown]
